FAERS Safety Report 7939002-7 (Version None)
Quarter: 2011Q4

REPORT INFORMATION
  Report Type: 
  Country: None (occurrence: None)
  Receive Date: 20111124
  Receipt Date: 20111118
  Transmission Date: 20120403
  Serious: Yes (Hospitalization)
  Sender: FDA-Public Use
  Company Number: GB-AMGEN-GBRCT2011061185

PATIENT
  Age: 63 Year
  Sex: Female

DRUGS (5)
  1. EPIRUBICIN [Concomitant]
     Dosage: 100 MG, QD
     Route: 042
     Dates: start: 20110905
  2. CYCLOPHOSPHAMIDE [Concomitant]
     Dosage: UNK UNK, Q3WK
     Route: 042
     Dates: start: 20110905
  3. FLUOROURACIL [Concomitant]
     Dosage: UNK UNK, Q3WK
     Route: 042
     Dates: start: 20110905
  4. DENOSUMAB [Suspect]
     Indication: BREAST CANCER
     Dosage: 120 MG, UNK
     Route: 058
     Dates: start: 20110905
  5. FLOXACILLIN SODIUM [Concomitant]
     Dosage: UNK
     Dates: start: 20111115

REACTIONS (7)
  - ORAL PAIN [None]
  - SEROMA [None]
  - PLATELET COUNT DECREASED [None]
  - DIZZINESS [None]
  - NEUTROPENIC INFECTION [None]
  - WOUND INFECTION [None]
  - HAEMOGLOBIN DECREASED [None]
